FAERS Safety Report 13447333 (Version 1)
Quarter: 2017Q2

REPORT INFORMATION
  Report Type: Spontaneous
  Country: US (occurrence: US)
  Receive Date: 20170414
  Receipt Date: 20170414
  Transmission Date: 20170830
  Serious: Yes (Disabling)
  Sender: FDA-Public Use
  Company Number: None

PATIENT
  Age: 65 Year
  Sex: Female
  Weight: 72.9 kg

DRUGS (5)
  1. IODINE. [Concomitant]
     Active Substance: IODINE
  2. MAGNESIUM [Concomitant]
     Active Substance: MAGNESIUM
  3. CALCIUM [Concomitant]
     Active Substance: CALCIUM
  4. CIPRO [Suspect]
     Active Substance: CIPROFLOXACIN HYDROCHLORIDE
     Indication: URINARY TRACT INFECTION
     Dates: start: 20160620, end: 20160623
  5. SELENIUM [Concomitant]
     Active Substance: SELENIUM

REACTIONS (9)
  - Muscular weakness [None]
  - Ear discomfort [None]
  - Dizziness [None]
  - Paraesthesia [None]
  - Impaired work ability [None]
  - Product label issue [None]
  - Headache [None]
  - Balance disorder [None]
  - Hypoaesthesia [None]

NARRATIVE: CASE EVENT DATE: 20170110
